FAERS Safety Report 8343443-6 (Version None)
Quarter: 2012Q2

REPORT INFORMATION
  Report Type: 
  Country: None (occurrence: None)
  Receive Date: 20120508
  Receipt Date: 20120502
  Transmission Date: 20120825
  Serious: Yes (Hospitalization, Disabling)
  Sender: FDA-Public Use
  Company Number: PHHY2012FR035179

PATIENT
  Sex: Female
  Weight: 54.8 kg

DRUGS (5)
  1. ZOLEDRONOC ACID [Suspect]
     Dosage: UNK UKN, UNK
     Route: 042
     Dates: start: 20110601
  2. PRAVASTATIN [Concomitant]
     Dosage: 20 MG, QD
  3. VITAMIN D [Concomitant]
     Dosage: 1 DF, QD
  4. ZOLEDRONOC ACID [Suspect]
     Indication: OSTEOPOROSIS
     Dosage: UNK UKN, UNK
     Route: 042
     Dates: start: 20100701
  5. CALCIPRAT [Concomitant]
     Dosage: 1 DF, QD

REACTIONS (5)
  - APHASIA [None]
  - HEMIPLEGIA [None]
  - ATRIAL FIBRILLATION [None]
  - CEREBROVASCULAR ACCIDENT [None]
  - ISCHAEMIC STROKE [None]
